FAERS Safety Report 20950665 (Version 1)
Quarter: 2022Q2

REPORT INFORMATION
  Report Type: Spontaneous
  Country: US (occurrence: None)
  Receive Date: 20220613
  Receipt Date: 20220613
  Transmission Date: 20220720
  Serious: No
  Sender: FDA-Public Use
  Company Number: None

PATIENT
  Sex: Male

DRUGS (1)
  1. OTEZLA [Suspect]
     Active Substance: APREMILAST
     Indication: Psoriatic arthropathy
     Dosage: 30MG BID ORAL?
     Route: 048
     Dates: start: 20201212

REACTIONS (3)
  - Psoriasis [None]
  - Pruritus [None]
  - Drug ineffective [None]
